FAERS Safety Report 22097004 (Version 2)
Quarter: 2023Q1

REPORT INFORMATION
  Report Type: Spontaneous
  Country: US (occurrence: US)
  Receive Date: 20230315
  Receipt Date: 20230322
  Transmission Date: 20230418
  Serious: No
  Sender: FDA-Public Use
  Company Number: US-PFIZER INC-PV202300046520

PATIENT
  Age: 12 Year
  Sex: Female

DRUGS (3)
  1. GENOTROPIN [Suspect]
     Active Substance: SOMATROPIN
     Indication: Hypopituitarism
     Dosage: 2 MG, DAILY
  2. GENOTROPIN [Suspect]
     Active Substance: SOMATROPIN
     Dosage: ALTERNATE DAY (1.6 MG ALTERNATING WITH 1.8 MG)
     Dates: start: 20230308
  3. GENOTROPIN [Suspect]
     Active Substance: SOMATROPIN
     Dosage: ALTERNATE DAY (1.6 MG ALTERNATING WITH 1.8 MG)
     Dates: start: 20230308

REACTIONS (7)
  - Poor quality device used [Unknown]
  - Product administered at inappropriate site [Unknown]
  - Incorrect dose administered by device [Unknown]
  - Device breakage [Unknown]
  - Device leakage [Unknown]
  - Extravasation [Unknown]
  - Off label use [Unknown]
